FAERS Safety Report 16499256 (Version 1)
Quarter: 2019Q3

REPORT INFORMATION
  Report Type: Spontaneous
  Country: DE (occurrence: DE)
  Receive Date: 20190701
  Receipt Date: 20190701
  Transmission Date: 20191004
  Serious: Yes (Other)
  Sender: FDA-Public Use
  Company Number: DE-009507513-1409DEU007320

PATIENT
  Age: 40 Year
  Sex: Female
  Weight: 77 kg

DRUGS (9)
  1. DOPEGYT [Suspect]
     Active Substance: METHYLDOPA
     Indication: HYPERTENSION
     Dosage: 1000[MG/D(4X250MG/D)]
     Route: 048
     Dates: start: 20130502, end: 20131113
  2. INSULIN [Concomitant]
     Active Substance: INSULIN NOS
  3. L-THYROXIN [Concomitant]
     Active Substance: LEVOTHYROXINE SODIUM
     Indication: AUTOIMMUNE THYROIDITIS
     Dosage: 75 [MICROGRAM/D]
     Route: 048
     Dates: start: 20130310, end: 20131113
  4. RAMIPRIL. [Suspect]
     Active Substance: RAMIPRIL
     Indication: HYPERTENSION
     Dosage: 10 [MG/D]
     Route: 048
     Dates: start: 20130310, end: 20130425
  5. FOLIC ACID. [Concomitant]
     Active Substance: FOLIC ACID
     Indication: PROPHYLAXIS
     Dosage: 0.4 MILLIGRAM, QD
     Route: 048
  6. METFORMIN [Suspect]
     Active Substance: METFORMIN HYDROCHLORIDE
     Indication: TYPE 2 DIABETES MELLITUS
     Dosage: 2000[MG/D]; 1000MG, BID
     Route: 048
     Dates: start: 20130310, end: 20130425
  7. XELEVIA [Suspect]
     Active Substance: SITAGLIPTIN PHOSPHATE
     Indication: TYPE 2 DIABETES MELLITUS
     Dosage: 100 MG, ONCE DAILY (QD)
     Route: 048
     Dates: start: 20130310, end: 20130425
  8. METOPROLOL TARTRATE. [Concomitant]
     Active Substance: METOPROLOL TARTRATE
     Indication: HYPERTENSION
     Dosage: 95[MG/D(2X47.5MG/D)]
     Route: 048
     Dates: start: 20130502, end: 20131113
  9. IODINE. [Concomitant]
     Active Substance: IODINE
     Indication: PROPHYLAXIS
     Dosage: 0.4 MG, QD
     Route: 048

REACTIONS (3)
  - Polyhydramnios [Unknown]
  - Premature delivery [Unknown]
  - Maternal exposure during pregnancy [Unknown]

NARRATIVE: CASE EVENT DATE: 2013
